FAERS Safety Report 23712142 (Version 2)
Quarter: 2024Q2

REPORT INFORMATION
  Report Type: Spontaneous
  Country: US (occurrence: US)
  Receive Date: 20240405
  Receipt Date: 20240501
  Transmission Date: 20240716
  Serious: No
  Sender: FDA-Public Use
  Company Number: US-PFIZER INC-202400071832

PATIENT
  Age: 15 Year
  Sex: Male

DRUGS (1)
  1. NGENLA [Suspect]
     Active Substance: SOMATROGON-GHLA
     Dosage: 27 MG WEEKLY

REACTIONS (4)
  - Injection site pain [Unknown]
  - Incorrect dose administered by product [Unknown]
  - Device issue [Unknown]
  - Device mechanical issue [Unknown]
